FAERS Safety Report 7533123-9 (Version None)
Quarter: 2011Q2

REPORT INFORMATION
  Report Type: 
  Country: None (occurrence: None)
  Receive Date: 20110608
  Receipt Date: 20020204
  Transmission Date: 20111010
  Serious: Yes (Death, Hospitalization, Other)
  Sender: FDA-Public Use
  Company Number: PHBS2002CA01604

PATIENT
  Sex: Male

DRUGS (3)
  1. CLOZAPINE [Suspect]
     Dosage: 600 MG/D
     Route: 048
     Dates: start: 20011228
  2. VALPROATE SODIUM [Concomitant]
  3. CLOZAPINE [Suspect]
     Indication: SCHIZOPHRENIA
     Dosage: 500 MG/D
     Route: 048
     Dates: start: 19991208

REACTIONS (8)
  - LIVER FUNCTION TEST ABNORMAL [None]
  - ASCITES [None]
  - METASTASES TO LIVER [None]
  - JAUNDICE [None]
  - MALAISE [None]
  - LUNG NEOPLASM MALIGNANT [None]
  - FATIGUE [None]
  - COLON CANCER [None]
